FAERS Safety Report 23952809 (Version 1)
Quarter: 2024Q2

REPORT INFORMATION
  Report Type: Spontaneous
  Country: US (occurrence: None)
  Receive Date: 20240607
  Receipt Date: 20240607
  Transmission Date: 20240716
  Serious: Yes (Other)
  Sender: FDA-Public Use
  Company Number: None

PATIENT
  Age: 44 Year
  Sex: Female
  Weight: 105.75 kg

DRUGS (6)
  1. LEVOFLOXACIN [Suspect]
     Active Substance: LEVOFLOXACIN
  2. BACLOFEN [Concomitant]
  3. GABAPENTIN [Concomitant]
  4. DEXAMETHASONE [Concomitant]
  5. cephalexin [Concomitant]
  6. Multivitamin [Concomitant]

REACTIONS (9)
  - Disorientation [None]
  - Memory impairment [None]
  - Fatigue [None]
  - Vascular rupture [None]
  - Feeling abnormal [None]
  - Anxiety [None]
  - Paranoia [None]
  - Hallucination [None]
  - Tremor [None]

NARRATIVE: CASE EVENT DATE: 20240603
